FAERS Safety Report 9796163 (Version 4)
Quarter: 2014Q1

REPORT INFORMATION
  Report Type: Spontaneous
  Country: US (occurrence: US)
  Receive Date: 20140103
  Receipt Date: 20140305
  Transmission Date: 20141002
  Serious: Yes (Hospitalization, Other)
  Sender: FDA-Public Use
  Company Number: US-GILEAD-2014-0091149

PATIENT
  Sex: Female

DRUGS (4)
  1. LETAIRIS [Suspect]
     Indication: PRODUCT USED FOR UNKNOWN INDICATION
     Dosage: 5 MG, QD
     Route: 048
     Dates: start: 20130920
  2. REMODULIN [Concomitant]
  3. REVATIO [Concomitant]
  4. TRACLEER                           /01587701/ [Concomitant]

REACTIONS (2)
  - Pulmonary veno-occlusive disease [Unknown]
  - Oedema peripheral [Unknown]
